FAERS Safety Report 23330152 (Version 1)
Quarter: 2023Q4

REPORT INFORMATION
  Report Type: Report from Study
  Country: CA (occurrence: CA)
  Receive Date: 20231222
  Receipt Date: 20231222
  Transmission Date: 20240109
  Serious: Yes (Other)
  Sender: FDA-Public Use
  Company Number: CA-SHIRE-CA202026472

PATIENT
  Age: 40 Year
  Sex: Male

DRUGS (2)
  1. ANTI-INHIBITOR COAGULANT COMPLEX [Suspect]
     Active Substance: ANTI-INHIBITOR COAGULANT COMPLEX
     Indication: Factor VIII deficiency
     Dosage: 5000 MILLIGRAM, 1X/WEEK
     Route: 065
     Dates: start: 20200603, end: 20200902
  2. CUVITRU [Suspect]
     Active Substance: HUMAN IMMUNOGLOBULIN G
     Indication: Factor VIII deficiency
     Dosage: UNK
     Route: 065
     Dates: start: 20200808

REACTIONS (7)
  - Drug ineffective [Unknown]
  - Complication associated with device [Unknown]
  - Blood pressure increased [Unknown]
  - Infusion site discharge [Not Recovered/Not Resolved]
  - Product leakage [Unknown]
  - Pruritus [Not Recovered/Not Resolved]
  - Product use in unapproved indication [Unknown]

NARRATIVE: CASE EVENT DATE: 20200808
